FAERS Safety Report 15408199 (Version 1)
Quarter: 2018Q3

REPORT INFORMATION
  Report Type: Report from Study
  Country: US (occurrence: US)
  Receive Date: 20180920
  Receipt Date: 20180920
  Transmission Date: 20181010
  Serious: Yes (Hospitalization)
  Sender: FDA-Public Use
  Company Number: US-JNJFOC-20180920776

PATIENT
  Age: 85 Year
  Sex: Female

DRUGS (7)
  1. IBRUTINIB [Suspect]
     Active Substance: IBRUTINIB
     Indication: CHRONIC LYMPHOCYTIC LEUKAEMIA
     Route: 048
     Dates: start: 20140815
  2. IMBRUVICA [Suspect]
     Active Substance: IBRUTINIB
     Indication: CHRONIC LYMPHOCYTIC LEUKAEMIA
     Route: 048
     Dates: start: 20180403, end: 20180911
  3. METOPROLOL. [Concomitant]
     Active Substance: METOPROLOL
  4. LASIX [Concomitant]
     Active Substance: FUROSEMIDE
  5. ASPIRIN. [Concomitant]
     Active Substance: ASPIRIN
  6. ELIQUIS [Concomitant]
     Active Substance: APIXABAN
  7. ATIVAN [Concomitant]
     Active Substance: LORAZEPAM

REACTIONS (5)
  - Cardiac disorder [Unknown]
  - Dysphagia [Not Recovered/Not Resolved]
  - Paranoia [Unknown]
  - Cognitive disorder [Unknown]
  - Delirium [Unknown]

NARRATIVE: CASE EVENT DATE: 20180911
